FAERS Safety Report 9549256 (Version 1)
Quarter: 2013Q2

REPORT INFORMATION
  Report Type: Spontaneous
  Country: US (occurrence: None)
  Receive Date: 20130627
  Receipt Date: 20130627
  Transmission Date: 20140414
  Serious: No
  Sender: FDA-Public Use
  Company Number: 1000043885

PATIENT
  Age: 53 Year
  Sex: Male

DRUGS (4)
  1. LINZESS (LINACLOTIDE) (145 MICROGRAM, CAPSULES) [Suspect]
     Indication: CONSTIPATION
     Dosage: 145 MCG EVERY OTHER DAY, ORAL
     Route: 048
     Dates: start: 201303
  2. LISINOPRIL (LISINIOPRIL) (LISINOPRIL) [Concomitant]
  3. OMEGA-3 (OMEGA-3) (OMEGA-3) [Concomitant]
  4. PROZAC (FLUOXETINE HYDROCHLORIDE) (FLUOXETINE HYDROCHLORIDE) [Concomitant]

REACTIONS (2)
  - Diarrhoea [None]
  - Abdominal pain [None]
